FAERS Safety Report 19326122 (Version 6)
Quarter: 2021Q3

REPORT INFORMATION
  Report Type: Report from Study
  Country: CA (occurrence: CA)
  Receive Date: 20210528
  Receipt Date: 20210924
  Transmission Date: 20211014
  Serious: Yes (Hospitalization, Other)
  Sender: FDA-Public Use
  Company Number: PHHY2018CA023560

PATIENT
  Age: 55 Year
  Sex: Female

DRUGS (20)
  1. XOLAIR [Suspect]
     Active Substance: OMALIZUMAB
     Dosage: 150 MG, (EVERY 4 WEEKS)
     Route: 058
     Dates: start: 20190627
  2. XOLAIR [Suspect]
     Active Substance: OMALIZUMAB
     Dosage: 150 MG, QMO
     Route: 058
  3. VANCOMYCIN [Suspect]
     Active Substance: VANCOMYCIN
     Indication: PRODUCT USED FOR UNKNOWN INDICATION
     Dosage: UNK
     Route: 065
  4. XOLAIR [Suspect]
     Active Substance: OMALIZUMAB
     Indication: PRODUCT USED FOR UNKNOWN INDICATION
     Dosage: 150 MG, EVERY 4 WEEKS
     Route: 058
  5. LIDOCAINE. [Suspect]
     Active Substance: LIDOCAINE
     Indication: PRODUCT USED FOR UNKNOWN INDICATION
     Dosage: UNK, Q4W
     Route: 042
  6. DILAUDID [Concomitant]
     Active Substance: HYDROMORPHONE HYDROCHLORIDE
     Indication: PRODUCT USED FOR UNKNOWN INDICATION
     Dosage: UNK
     Route: 037
  7. XOLAIR [Suspect]
     Active Substance: OMALIZUMAB
     Indication: ASTHMA
     Dosage: 150 MG, (EVERY 4 WEEKS)
     Route: 058
     Dates: start: 20070827
  8. XOLAIR [Suspect]
     Active Substance: OMALIZUMAB
     Dosage: 150 MG, (EVERY 4 WEEKS) (STRENGTH: 75/150 MG)
     Route: 058
     Dates: start: 20150130
  9. XOLAIR [Suspect]
     Active Substance: OMALIZUMAB
     Dosage: 150 MG, (EVERY 4 WEEKS)
     Route: 058
     Dates: start: 20190716
  10. XOLAIR [Suspect]
     Active Substance: OMALIZUMAB
     Dosage: 150 MG  (EVERY 4 WEEKS)
     Route: 058
  11. XOLAIR [Suspect]
     Active Substance: OMALIZUMAB
     Dosage: 150 MG  (EVERY 4 WEEKS)
     Route: 058
  12. XOLAIR [Suspect]
     Active Substance: OMALIZUMAB
     Dosage: 150 MG, (EVERY 4 WEEKS)
     Route: 058
     Dates: start: 20180531
  13. XOLAIR [Suspect]
     Active Substance: OMALIZUMAB
     Dosage: 150 MG, (EVERY 4 WEEKS)
     Route: 058
     Dates: start: 20180111
  14. XOLAIR [Suspect]
     Active Substance: OMALIZUMAB
     Dosage: 150 MG, (EVERY 4 WEEKS)
     Route: 058
     Dates: start: 20180208
  15. XOLAIR [Suspect]
     Active Substance: OMALIZUMAB
     Dosage: 150 MG, (EVERY 4 WEEKS)
     Route: 058
     Dates: start: 20181115
  16. XOLAIR [Suspect]
     Active Substance: OMALIZUMAB
     Dosage: 150 MG, (EVERY 4 WEEKS)
     Route: 058
     Dates: start: 20190404
  17. XOLAIR [Suspect]
     Active Substance: OMALIZUMAB
     Dosage: 150 MG, (EVERY 4 WEEKS)
     Route: 058
     Dates: start: 20180801
  18. XOLAIR [Suspect]
     Active Substance: OMALIZUMAB
     Dosage: 150 MG, (EVERY 4 WEEKS)
     Route: 058
     Dates: start: 20190504
  19. XOLAIR [Suspect]
     Active Substance: OMALIZUMAB
     Dosage: 150 MG, EVERY 4 WEEKS
     Route: 058
     Dates: start: 20210803
  20. XOLAIR [Suspect]
     Active Substance: OMALIZUMAB
     Dosage: 150 MG  (EVERY 4 WEEKS)
     Route: 058

REACTIONS (23)
  - Urinary tract infection [Unknown]
  - Influenza [Unknown]
  - Influenza like illness [Recovering/Resolving]
  - Fall [Recovered/Resolved]
  - Fall [Unknown]
  - Malaise [Unknown]
  - Asthenia [Recovered/Resolved]
  - Syncope [Recovered/Resolved]
  - Compression fracture [Unknown]
  - Oropharyngeal pain [Unknown]
  - Wound [Not Recovered/Not Resolved]
  - Seroma [Unknown]
  - Implant site bruising [Unknown]
  - Drug hypersensitivity [Unknown]
  - Product dose omission issue [Unknown]
  - Heart rate increased [Unknown]
  - Dizziness [Unknown]
  - Abdominal discomfort [Unknown]
  - Post procedural infection [Unknown]
  - Mobility decreased [Unknown]
  - Post procedural complication [Unknown]
  - Anxiety [Unknown]
  - Incision site swelling [Unknown]

NARRATIVE: CASE EVENT DATE: 20180208
